FAERS Safety Report 10145648 (Version 3)
Quarter: 2014Q2

REPORT INFORMATION
  Report Type: Report from Study
  Country: US (occurrence: US)
  Receive Date: 20140501
  Receipt Date: 20140512
  Transmission Date: 20141212
  Serious: Yes (Death)
  Sender: FDA-Public Use
  Company Number: PHEH2012US019229

PATIENT
  Age: 62 Year
  Sex: Female

DRUGS (1)
  1. AFINITOR [Suspect]
     Indication: BREAST CANCER
     Dosage: 10 MG, QD
     Route: 048
     Dates: start: 20120914

REACTIONS (6)
  - Death [Fatal]
  - Rash [Unknown]
  - Nausea [Unknown]
  - Stomatitis [Unknown]
  - Oral pain [Recovered/Resolved]
  - Oral disorder [Recovered/Resolved]
